FAERS Safety Report 8230324-1 (Version None)
Quarter: 2012Q1

REPORT INFORMATION
  Report Type: 
  Country: None (occurrence: None)
  Receive Date: 20120322
  Receipt Date: 20120322
  Transmission Date: 20120608
  Serious: No
  Sender: FDA-Public Use
  Company Number: None

PATIENT
  Age: 31 Year
  Sex: Female

DRUGS (1)
  1. CYCLOPHOSPHAMIDE [Suspect]
     Dates: end: 20110108

REACTIONS (7)
  - PRURITUS [None]
  - LIVER DISORDER [None]
  - CONTUSION [None]
  - HEPATIC NECROSIS [None]
  - HEPATIC FIBROSIS [None]
  - PNEUMONIA [None]
  - BLOOD BILIRUBIN INCREASED [None]
